FAERS Safety Report 16857562 (Version 1)
Quarter: 2019Q3

REPORT INFORMATION
  Report Type: Spontaneous
  Country: US (occurrence: US)
  Receive Date: 20190926
  Receipt Date: 20190926
  Transmission Date: 20191005
  Serious: No
  Sender: FDA-Public Use
  Company Number: US-HORIZON-VIM-0347-2019

PATIENT
  Age: 48 Year
  Sex: Male

DRUGS (12)
  1. VIMOVO [Suspect]
     Active Substance: ESOMEPRAZOLE MAGNESIUM\NAPROXEN
     Indication: ARTHRITIS
     Dosage: 1 TAB BID
     Route: 048
  2. LEVOTHYROXINE. [Concomitant]
     Active Substance: LEVOTHYROXINE
  3. TIZANIDINE. [Concomitant]
     Active Substance: TIZANIDINE
  4. VITAMIN D3 [Concomitant]
     Active Substance: CHOLECALCIFEROL
  5. PROAIR HFA [Concomitant]
     Active Substance: ALBUTEROL SULFATE
  6. MONTELUKAST [Concomitant]
     Active Substance: MONTELUKAST SODIUM
  7. SIMVASTATIN. [Concomitant]
     Active Substance: SIMVASTATIN
  8. ZOLOFT [Concomitant]
     Active Substance: SERTRALINE HYDROCHLORIDE
  9. MUCINEX [Concomitant]
     Active Substance: GUAIFENESIN
  10. VITAMIN C [Concomitant]
     Active Substance: ASCORBIC ACID
  11. LISINOPRIL. [Concomitant]
     Active Substance: LISINOPRIL
  12. CEFDINIR. [Concomitant]
     Active Substance: CEFDINIR

REACTIONS (1)
  - Dyspepsia [Unknown]
